FAERS Safety Report 4726122-3 (Version None)
Quarter: 2005Q3

REPORT INFORMATION
  Report Type: 
  Country: None (occurrence: None)
  Receive Date: 20050725
  Receipt Date: 20050725
  Transmission Date: 20060218
  Serious: Yes (Other)
  Sender: FDA-Public Use
  Company Number: None

PATIENT
  Age: 49 Year
  Sex: Male
  Weight: 74.8435 kg

DRUGS (9)
  1. ARIPIPRAZOLE 10 MG/TAB ( ) PO TAKE ONE DAILY [Suspect]
     Indication: SCHIZOAFFECTIVE DISORDER
     Dosage: 10 MG Q HS PO
     Route: 048
  2. SEROQUEL [Concomitant]
  3. LORATADINE [Concomitant]
  4. TYLENOL (CAPLET) [Concomitant]
  5. LAMISIL [Concomitant]
  6. ULTRAM [Concomitant]
  7. LITHIUM CARBONATE [Concomitant]
  8. PRILOSEC [Concomitant]
  9. COMBIVENT INH [Concomitant]

REACTIONS (1)
  - RASH ERYTHEMATOUS [None]
